FAERS Safety Report 8307360-X (Version None)
Quarter: 2012Q2

REPORT INFORMATION
  Report Type: 
  Country: None (occurrence: None)
  Receive Date: 20120424
  Receipt Date: 20120412
  Transmission Date: 20120825
  Serious: Yes (Life-Threatening, Hospitalization, Other)
  Sender: FDA-Public Use
  Company Number: CH-BRISTOL-MYERS SQUIBB COMPANY-16521346

PATIENT
  Age: 23 Year
  Sex: Female
  Weight: 47 kg

DRUGS (10)
  1. ACETAMINOPHEN [Concomitant]
  2. PASPERTIN [Concomitant]
  3. ZOFRAN [Concomitant]
  4. ETOPOPHOS PRESERVATIVE FREE [Suspect]
     Indication: METASTASIS
     Dosage: FIRST CYCLE ON 30-JAN-2012.
     Route: 042
     Dates: start: 20120301, end: 20120302
  5. CARBOPLATIN [Interacting]
     Indication: METASTASIS
     Dosage: FIRST CYCLE ON 30-JAN-2012.
     Route: 042
     Dates: start: 20120301, end: 20120302
  6. IFOSFAMIDE [Interacting]
     Indication: METASTASIS
     Dosage: FIRST CYCLE ON 30-JAN-2012.
     Route: 042
     Dates: start: 20120301, end: 20120302
  7. PANTOPRAZOLE [Concomitant]
  8. TORSEMIDE [Concomitant]
  9. DURAGESIC-100 [Concomitant]
  10. MORPHINE [Concomitant]
     Dosage: LIQUID FORMULATION

REACTIONS (4)
  - ENCEPHALOPATHY [None]
  - NEUTROPENIA [None]
  - DRUG INTERACTION [None]
  - CONVULSION [None]
